FAERS Safety Report 7209705-0 (Version None)
Quarter: 2011Q1

REPORT INFORMATION
  Report Type: 
  Country: None (occurrence: None)
  Receive Date: 20110104
  Receipt Date: 20101221
  Transmission Date: 20110831
  Serious: Yes (Death)
  Sender: FDA-Public Use
  Company Number: TW-JNJFOC-20090705266

PATIENT
  Sex: Female
  Weight: 61 kg

DRUGS (2)
  1. ACETAMINOPHEN [Suspect]
     Indication: SUICIDE ATTEMPT
     Route: 048
  2. ACETAMINOPHEN [Suspect]
     Route: 048

REACTIONS (9)
  - OVERDOSE [None]
  - CARDIAC FAILURE [None]
  - GASTROINTESTINAL HAEMORRHAGE [None]
  - SUICIDE ATTEMPT [None]
  - ACIDOSIS [None]
  - PREMATURE LABOUR [None]
  - HEPATORENAL SYNDROME [None]
  - HEPATIC NECROSIS [None]
  - DRUG EXPOSURE DURING PREGNANCY [None]
